FAERS Safety Report 24332274 (Version 3)
Quarter: 2024Q4

REPORT INFORMATION
  Report Type: Spontaneous
  Country: CA (occurrence: CA)
  Receive Date: 20240918
  Receipt Date: 20241205
  Transmission Date: 20250114
  Serious: Yes (Other)
  Sender: TERSERA THERAPEUTICS
  Company Number: CA-TERSERA THERAPEUTICS LLC-2024TRS001169

PATIENT

DRUGS (10)
  1. GOSERELIN [Suspect]
     Active Substance: GOSERELIN
     Indication: Prostate cancer stage IV
     Dosage: 10.8 MG, EVERY 3 MONTHS
     Route: 058
     Dates: start: 20231121
  2. GOSERELIN [Suspect]
     Active Substance: GOSERELIN
     Dosage: 10.8 MG, EVERY 3 MONTHS
     Route: 058
  3. GOSERELIN [Suspect]
     Active Substance: GOSERELIN
     Dosage: 10.8 MG, EVERY 3 MONTHS
     Route: 058
  4. GOSERELIN [Suspect]
     Active Substance: GOSERELIN
     Dosage: 10.8 MG, EVERY 3 MONTHS
     Route: 058
     Dates: start: 20240220
  5. GOSERELIN [Suspect]
     Active Substance: GOSERELIN
     Dosage: 10.8 MG, EVERY 3 MONTHS
     Route: 058
     Dates: start: 20240821
  6. GOSERELIN [Suspect]
     Active Substance: GOSERELIN
     Dosage: 10.8 MG, EVERY 3 MONTHS
     Route: 058
     Dates: start: 20241120
  7. ZOLADEX [Suspect]
     Active Substance: GOSERELIN ACETATE
     Indication: Product used for unknown indication
     Dosage: UNK
     Route: 065
  8. LUPRON [Concomitant]
     Active Substance: LEUPROLIDE ACETATE
     Indication: Product used for unknown indication
     Dosage: UNK
     Route: 065
  9. VITAMIN D3 [Concomitant]
     Active Substance: CHOLECALCIFEROL
     Indication: Product used for unknown indication
     Dosage: UNK
     Route: 065
  10. ENZALUTAMIDE [Concomitant]
     Active Substance: ENZALUTAMIDE
     Indication: Prostate cancer
     Dosage: 40 MG, QID
     Route: 065

REACTIONS (16)
  - Metastases to bone [Not Recovered/Not Resolved]
  - Prostate cancer metastatic [Unknown]
  - Mobility decreased [Not Recovered/Not Resolved]
  - Myalgia [Unknown]
  - Penile size reduced [Unknown]
  - Weight decreased [Not Recovered/Not Resolved]
  - Body height decreased [Unknown]
  - Nocturia [Unknown]
  - Arthralgia [Not Recovered/Not Resolved]
  - Gynaecomastia [Not Recovered/Not Resolved]
  - Testicular atrophy [Unknown]
  - Musculoskeletal stiffness [Unknown]
  - Paraesthesia [Unknown]
  - Peripheral swelling [Unknown]
  - Headache [Not Recovered/Not Resolved]
  - Fatigue [Unknown]

NARRATIVE: CASE EVENT DATE: 20240101
